FAERS Safety Report 6287747-X (Version None)
Quarter: 2009Q3

REPORT INFORMATION
  Report Type: 
  Country: None (occurrence: None)
  Receive Date: 20090717
  Receipt Date: 20090202
  Transmission Date: 20100115
  Serious: Yes (Other)
  Sender: FDA-Public Use
  Company Number: 2009SP002370

PATIENT
  Age: 68 Year
  Sex: Female

DRUGS (8)
  1. INTEGRILIN [Suspect]
     Indication: DRUG USE FOR UNKNOWN INDICATION
     Dosage: 2 MCG;IV ; 180 MCG;IV ; 90 MCG;IV
     Route: 042
  2. LISINOPRIL [Concomitant]
  3. ATENOLOL [Concomitant]
  4. PLAVIX [Concomitant]
  5. ASPIRIN [Concomitant]
  6. REMICADE [Concomitant]
  7. IMURAN [Concomitant]
  8. WELCHOL [Concomitant]

REACTIONS (1)
  - THROMBOCYTOPENIA [None]
